FAERS Safety Report 11589128 (Version 1)
Quarter: 2015Q4

REPORT INFORMATION
  Report Type: Spontaneous
  Country: US (occurrence: US)
  Receive Date: 20151002
  Receipt Date: 20151002
  Transmission Date: 20160304
  Serious: No
  Sender: FDA-Public Use
  Company Number: US-PFIZER INC-2015329318

PATIENT
  Age: 67 Year
  Sex: Female

DRUGS (2)
  1. IBUPROFEN. [Suspect]
     Active Substance: IBUPROFEN
     Dosage: UNKNOWN
  2. CODEINE [Suspect]
     Active Substance: CODEINE
     Dosage: UNKNOWN

REACTIONS (1)
  - Drug hypersensitivity [Not Recovered/Not Resolved]
